FAERS Safety Report 12503204 (Version 1)
Quarter: 2016Q2

REPORT INFORMATION
  Report Type: Spontaneous
  Country: US (occurrence: None)
  Receive Date: 20160627
  Receipt Date: 20160627
  Transmission Date: 20160815
  Serious: Yes (Hospitalization)
  Sender: FDA-Public Use
  Company Number: None

PATIENT
  Age: 33 Year
  Sex: Female
  Weight: 99.79 kg

DRUGS (2)
  1. VISTARIL [Concomitant]
     Active Substance: HYDROXYZINE PAMOATE
  2. PROCHLORPERAZINE UNK [Suspect]
     Active Substance: PROCHLORPERAZINE
     Indication: HEADACHE
     Route: 042

REACTIONS (3)
  - Anxiety [None]
  - Feeling abnormal [None]
  - Drug ineffective [None]

NARRATIVE: CASE EVENT DATE: 20160302
